FAERS Safety Report 14113139 (Version 1)
Quarter: 2017Q4

REPORT INFORMATION
  Report Type: Spontaneous
  Country: US (occurrence: None)
  Receive Date: 20171020
  Receipt Date: 20171020
  Transmission Date: 20180321
  Serious: No
  Sender: FDA-Public Use
  Company Number: None

PATIENT
  Age: 73 Year
  Sex: Female

DRUGS (1)
  1. CAPECITABINE TAB 500MG [Suspect]
     Active Substance: CAPECITABINE
     Dosage: 500MG 2BID FOR 7DAYS ORAL
     Route: 048
     Dates: start: 20161019

REACTIONS (4)
  - Purpura [None]
  - Oedema [None]
  - Cardiac failure [None]
  - Pericardial effusion [None]

NARRATIVE: CASE EVENT DATE: 20171020
